FAERS Safety Report 8571949-3 (Version None)
Quarter: 2012Q2

REPORT INFORMATION
  Report Type: 
  Country: None (occurrence: None)
  Receive Date: 20120418
  Receipt Date: 20091214
  Transmission Date: 20120825
  Serious: Yes (Life-Threatening, Other)
  Sender: FDA-Public Use
  Company Number: PHHY2009US55248

PATIENT
  Age: 80 Year
  Sex: Female
  Weight: 61.8 kg

DRUGS (6)
  1. DIOVAN HCT [Suspect]
     Indication: HYPERTENSION
     Dosage: 160/12.4 MG, ORAL
     Route: 048
     Dates: start: 20090929, end: 20091201
  2. DIOVAN HCT [Suspect]
     Indication: DIABETES MELLITUS
     Dosage: 160/12.4 MG, ORAL
     Route: 048
     Dates: start: 20090929, end: 20091201
  3. METFFORMIN HYDROCHLORIDE [Concomitant]
  4. ACTOS (PIOGLITAZONE, PIOGLITAZONE HYDROCHLORIDE) [Concomitant]
  5. ZOCOR [Concomitant]
  6. DIAZEPAM [Concomitant]

REACTIONS (2)
  - HYPERKALAEMIA [None]
  - SYNCOPE [None]
